FAERS Safety Report 18742250 (Version 1)
Quarter: 2021Q1

REPORT INFORMATION
  Report Type: Report from Study
  Country: US (occurrence: US)
  Receive Date: 20210114
  Receipt Date: 20210114
  Transmission Date: 20210419
  Serious: Yes (Other)
  Sender: FDA-Public Use
  Company Number: US-BAYER-2020-285684

PATIENT
  Age: 52 Year
  Sex: Male

DRUGS (2)
  1. STIVARGA [Suspect]
     Active Substance: REGORAFENIB
     Indication: COLON CANCER
     Dosage: 80 MG DAILY FOR 7 DAYS
     Route: 048
     Dates: start: 20201216, end: 20201222
  2. STIVARGA [Suspect]
     Active Substance: REGORAFENIB
     Indication: COLON CANCER
     Dosage: 120 MG DAILY FOR 7 DAYS
     Route: 048
     Dates: start: 20201223

REACTIONS (4)
  - Change of bowel habit [Not Recovered/Not Resolved]
  - Hypertension [Recovering/Resolving]
  - Off label use [Not Recovered/Not Resolved]
  - Haematochezia [Unknown]

NARRATIVE: CASE EVENT DATE: 202012
